FAERS Safety Report 22239421 (Version 1)
Quarter: 2023Q2

REPORT INFORMATION
  Report Type: Report from Study
  Country: NL (occurrence: NL)
  Receive Date: 20230421
  Receipt Date: 20230421
  Transmission Date: 20230722
  Serious: Yes (Other)
  Sender: FDA-Public Use
  Company Number: NL-MYLANLABS-2023M1042409

PATIENT
  Age: 11 Month

DRUGS (4)
  1. CISPLATIN [Suspect]
     Active Substance: CISPLATIN
     Indication: Ganglioneuroblastoma
     Dosage: UNK, CYCLE (FOUR CYCLES)
     Route: 065
  2. DOXORUBICIN [Suspect]
     Active Substance: DOXORUBICIN
     Indication: Ganglioneuroblastoma
     Dosage: UNK, CYCLE (SIX CYCLES)
     Route: 065
  3. CYCLOPHOSPHAMIDE [Suspect]
     Active Substance: CYCLOPHOSPHAMIDE
     Indication: Ganglioneuroblastoma
     Dosage: UNK UNK, CYCLE (SIX CYCLES)
     Route: 065
  4. TENIPOSIDE [Suspect]
     Active Substance: TENIPOSIDE
     Indication: Ganglioneuroblastoma
     Dosage: UNK UNK, CYCLE (FOUR CYCLES)
     Route: 065

REACTIONS (2)
  - Drug ineffective [Unknown]
  - Disease progression [Unknown]
